FAERS Safety Report 25159378 (Version 1)
Quarter: 2025Q2

REPORT INFORMATION
  Report Type: Spontaneous
  Country: IE (occurrence: IE)
  Receive Date: 20250404
  Receipt Date: 20250404
  Transmission Date: 20250717
  Serious: Yes (Other)
  Sender: UNICHEM
  Company Number: IE-UNICHEM LABORATORIES LIMITED-UNI-2025-IE-001740

PATIENT

DRUGS (1)
  1. ZONISAMIDE [Suspect]
     Active Substance: ZONISAMIDE
     Indication: Partial seizures
     Route: 065

REACTIONS (2)
  - Renal tubular acidosis [Recovering/Resolving]
  - Myopathy [Recovering/Resolving]
